FAERS Safety Report 18275105 (Version 1)
Quarter: 2020Q3

REPORT INFORMATION
  Report Type: Report from Study
  Country: None (occurrence: TR)
  Receive Date: 20200917
  Receipt Date: 20200917
  Transmission Date: 20201103
  Serious: Yes (Death)
  Sender: FDA-Public Use
  Company Number: TR-ABBVIE-20K-161-3243971-00

PATIENT
  Age: 73 Year
  Sex: Male
  Weight: 92 kg

DRUGS (4)
  1. DUODOPA [Suspect]
     Active Substance: CARBIDOPA\LEVODOPA
     Indication: PARKINSON^S DISEASE
     Dosage: SABAH DOZU (ML): 8.00 DEVAM DOZU (ML): 4.50 EKSTRA DOZ (ML): 1.00
     Route: 050
     Dates: start: 20191014, end: 20200120
  2. DOPADEX SR [Concomitant]
     Indication: PARKINSON^S DISEASE
     Dosage: 50 MG CARBIDOPA + 200 MG LEVODOPA
     Route: 048
  3. DUODOPA [Suspect]
     Active Substance: CARBIDOPA\LEVODOPA
     Dosage: SABAH DOZU (ML): 0.00 DEVAM DOZU (ML): 4.50 EKSTRA DOZ (ML): 1.00
     Route: 050
     Dates: start: 20200120, end: 20200217
  4. DUODOPA [Suspect]
     Active Substance: CARBIDOPA\LEVODOPA
     Dosage: MORNING DOSE (ML): 8.00 CONTINUOUS DOSE (ML): 5.00 EXTRA DOSE(ML): 1.00
     Route: 050
     Dates: start: 20200217, end: 20200315

REACTIONS (2)
  - Death [Fatal]
  - Dementia [Not Recovered/Not Resolved]

NARRATIVE: CASE EVENT DATE: 202001
